FAERS Safety Report 7643365-X (Version None)
Quarter: 2011Q3

REPORT INFORMATION
  Report Type: 
  Country: None (occurrence: None)
  Receive Date: 20110729
  Receipt Date: 20110720
  Transmission Date: 20111222
  Serious: Yes (Other)
  Sender: FDA-Public Use
  Company Number: US-ASTRAZENECA-2009UW03528

PATIENT
  Age: 484 Month
  Sex: Male
  Weight: 111.1 kg

DRUGS (3)
  1. SEROQUEL [Suspect]
     Indication: POST-TRAUMATIC STRESS DISORDER
     Dosage: 200 TO 300 MG
     Route: 048
     Dates: start: 20061204
  2. SERTRALINE HYDROCHLORIDE [Concomitant]
     Dates: start: 20070202, end: 20080422
  3. SEROQUEL [Suspect]
     Route: 048
     Dates: start: 20070702

REACTIONS (3)
  - ERECTILE DYSFUNCTION [None]
  - NEUROPATHY PERIPHERAL [None]
  - TYPE 2 DIABETES MELLITUS [None]
